FAERS Safety Report 17082698 (Version 2)
Quarter: 2019Q4

REPORT INFORMATION
  Report Type: Spontaneous
  Country: US (occurrence: US)
  Receive Date: 20191127
  Receipt Date: 20191206
  Transmission Date: 20200122
  Serious: Yes (Other)
  Sender: FDA-Public Use
  Company Number: US-GW PHARMA-201911USGW4350

PATIENT

DRUGS (1)
  1. EPIDIOLEX [Suspect]
     Active Substance: CANNABIDIOL
     Indication: EPILEPSY
     Dosage: 480 MILLIGRAM, BID
     Route: 048
     Dates: start: 2019

REACTIONS (4)
  - Alopecia [Unknown]
  - Electroencephalogram abnormal [Unknown]
  - Agitation [Unknown]
  - Heart rate irregular [Unknown]

NARRATIVE: CASE EVENT DATE: 2019
